FAERS Safety Report 11219952 (Version 15)
Quarter: 2016Q2

REPORT INFORMATION
  Report Type: Spontaneous
  Country: US (occurrence: US)
  Receive Date: 20150625
  Receipt Date: 20160518
  Transmission Date: 20160815
  Serious: Yes (Hospitalization)
  Sender: FDA-Public Use
  Company Number: US-ACTELION-A-US2015-119799

PATIENT
  Age: 63 Year
  Sex: Female

DRUGS (6)
  1. SILDENAFIL. [Concomitant]
     Active Substance: SILDENAFIL
  2. LETAIRIS [Concomitant]
     Active Substance: AMBRISENTAN
  3. OPSUMIT [Suspect]
     Active Substance: MACITENTAN
     Indication: PULMONARY HYPERTENSION
     Dosage: 10 MG, QD
     Route: 048
     Dates: start: 20140616
  4. VELETRI [Suspect]
     Active Substance: EPOPROSTENOL
     Indication: PULMONARY HYPERTENSION
     Dosage: 24 NG/KG, PER MIN
     Route: 042
     Dates: start: 20131021
  5. VELETRI [Suspect]
     Active Substance: EPOPROSTENOL
     Dosage: 24 NG/KG, PER MIN
     Route: 042
     Dates: start: 20150508
  6. ADCIRCA [Concomitant]
     Active Substance: TADALAFIL

REACTIONS (8)
  - Transfusion [Unknown]
  - Device infusion issue [Unknown]
  - Dyspnoea [Unknown]
  - Fall [Unknown]
  - Device alarm issue [Recovered/Resolved]
  - Femur fracture [Unknown]
  - Knee arthroplasty [Unknown]
  - Fluid retention [Unknown]

NARRATIVE: CASE EVENT DATE: 20160202
